FAERS Safety Report 9781356 (Version 1)
Quarter: 2013Q4

REPORT INFORMATION
  Report Type: Spontaneous
  Country: US (occurrence: US)
  Receive Date: 20131224
  Receipt Date: 20131224
  Transmission Date: 20140711
  Serious: Yes (Other)
  Sender: FDA-Public Use
  Company Number: US-GE HEALTHCARE MEDICAL DIAGNOSTICS-OSCN-PR-1311S-0113

PATIENT
  Age: 61 Year
  Sex: Male
  Weight: 124 kg

DRUGS (8)
  1. OMNISCAN [Suspect]
     Indication: AORTIC ANEURYSM
     Dates: start: 20041109, end: 20041109
  2. GADOLINIUM (UNSPECIFIED) [Suspect]
     Indication: AORTIC ANEURYSM
     Dates: start: 2002, end: 2002
  3. GADOLINIUM (UNSPECIFIED) [Suspect]
     Indication: AORTIC ANEURYSM REPAIR
     Dates: start: 2004, end: 2004
  4. MAGNEVIST [Suspect]
     Indication: MALAISE
     Dates: start: 20060117, end: 20060117
  5. MAGNEVIST [Suspect]
     Indication: FATIGUE
  6. MAGNEVIST [Suspect]
     Indication: HYPOAESTHESIA
  7. MAGNEVIST [Suspect]
     Indication: ASTHENIA
  8. CARVEDILOL [Concomitant]
     Indication: PRODUCT USED FOR UNKNOWN INDICATION
     Dates: start: 2002

REACTIONS (1)
  - Nephrogenic systemic fibrosis [Not Recovered/Not Resolved]
